FAERS Safety Report 8881039 (Version 2)
Quarter: 2012Q4

REPORT INFORMATION
  Report Type: Report from Study
  Country: BR (occurrence: BR)
  Receive Date: 20121101
  Receipt Date: 20121230
  Transmission Date: 20130627
  Serious: Yes (Other)
  Sender: FDA-Public Use
  Company Number: BR-US-EMD SERONO, INC.-7170818

PATIENT
  Sex: Male

DRUGS (5)
  1. REBIF [Suspect]
     Indication: RELAPSING-REMITTING MULTIPLE SCLEROSIS
     Dates: start: 201005
  2. EXODUS [Concomitant]
     Indication: PRODUCT USED FOR UNKNOWN INDICATION
  3. NIVEA [Concomitant]
     Indication: PRODUCT USED FOR UNKNOWN INDICATION
  4. DESUNIDA [Concomitant]
     Indication: PRODUCT USED FOR UNKNOWN INDICATION
  5. TYLENOL [Concomitant]
     Indication: PRODUCT USED FOR UNKNOWN INDICATION

REACTIONS (2)
  - Burns third degree [Recovered/Resolved]
  - Headache [Unknown]
